FAERS Safety Report 10056029 (Version 1)
Quarter: 2014Q2

REPORT INFORMATION
  Report Type: Report from Study
  Country: NL (occurrence: NL)
  Receive Date: 20140403
  Receipt Date: 20140403
  Transmission Date: 20141212
  Serious: Yes (Hospitalization)
  Sender: FDA-Public Use
  Company Number: PHHY2014NL039280

PATIENT
  Age: 78 Year
  Sex: Male

DRUGS (2)
  1. SANDOSTATIN LAR [Suspect]
     Indication: NEUROENDOCRINE TUMOUR
     Dosage: 10 MG PER 2 ML ONCE EVERY 4 WEEKS
  2. SANDOSTATIN LAR [Suspect]
     Dosage: 10 MG PER 2 ML ONCE EVERY 4 WEEKS
     Dates: start: 20140303

REACTIONS (2)
  - General physical health deterioration [Unknown]
  - Pain [Unknown]
